FAERS Safety Report 4628933-1 (Version None)
Quarter: 2005Q1

REPORT INFORMATION
  Report Type: 
  Country: None (occurrence: None)
  Receive Date: 20050107
  Receipt Date: 20051025
  Transmission Date: 20050727
  Serious: No
  Sender: FDA-Public Use
  Company Number: 233012K04USA

PATIENT
  Age: 37 Year
  Sex: Female

DRUGS (7)
  1. REBIF [Suspect]
     Indication: MULTIPLE SCLEROSIS
     Dosage: SEE IMAGE
     Route: 058
     Dates: start: 20020309
  2. REBIF [Suspect]
  3. REBIF [Suspect]
  4. REBIF [Suspect]
  5. NEURONTIN [Concomitant]
  6. ZOLOFT [Concomitant]
  7. ATIVAN [Concomitant]

REACTIONS (6)
  - HERPES ZOSTER [None]
  - INJECTION SITE ERYTHEMA [None]
  - INJECTION SITE REACTION [None]
  - INJECTION SITE SWELLING [None]
  - MALAISE [None]
  - MULTIPLE SCLEROSIS [None]
